FAERS Safety Report 8319673-6 (Version None)
Quarter: 2012Q2

REPORT INFORMATION
  Report Type: 
  Country: None (occurrence: None)
  Receive Date: 20120427
  Receipt Date: 20120420
  Transmission Date: 20120825
  Serious: Yes (Hospitalization)
  Sender: FDA-Public Use
  Company Number: IT-B.I. PHARMACEUTICALS,INC./RIDGEFIELD-2012-IT-00128IT

PATIENT
  Sex: Female

DRUGS (1)
  1. MELOXICAM [Suspect]
     Indication: NECK PAIN
     Dosage: 15 MG
     Route: 048
     Dates: start: 20110716, end: 20110720

REACTIONS (1)
  - HAEMATOCHEZIA [None]
